FAERS Safety Report 9832809 (Version 3)
Quarter: 2014Q1

REPORT INFORMATION
  Report Type: Report from Study
  Country: GB (occurrence: GB)
  Receive Date: 20140121
  Receipt Date: 20140206
  Transmission Date: 20141002
  Serious: Yes (Hospitalization)
  Sender: FDA-Public Use
  Company Number: GB-GLAXOSMITHKLINE-B0961300A

PATIENT
  Age: 79 Year
  Sex: Male
  Weight: 74 kg

DRUGS (16)
  1. OFATUMUMAB [Suspect]
     Indication: CHRONIC LYMPHOCYTIC LEUKAEMIA
     Route: 042
     Dates: start: 20140103, end: 20140103
  2. CHLORAMBUCIL [Suspect]
     Indication: CHRONIC LYMPHOCYTIC LEUKAEMIA
     Route: 048
     Dates: start: 20140104
  3. PARACETAMOL [Concomitant]
     Indication: CHRONIC LYMPHOCYTIC LEUKAEMIA
     Route: 048
     Dates: start: 20140103, end: 20140103
  4. CHLORPHENIRAMINE [Concomitant]
     Indication: CHRONIC LYMPHOCYTIC LEUKAEMIA
     Route: 042
     Dates: start: 20140103, end: 20140103
  5. PREDNISOLONE [Concomitant]
     Indication: CHRONIC LYMPHOCYTIC LEUKAEMIA
     Route: 042
     Dates: start: 20140103, end: 20140103
  6. ALLOPURINOL [Concomitant]
     Indication: CHRONIC LYMPHOCYTIC LEUKAEMIA
     Route: 048
     Dates: start: 20140103
  7. METOCLOPRAMIDE [Concomitant]
     Route: 048
     Dates: start: 20140103
  8. ACICLOVIR [Concomitant]
     Route: 048
     Dates: start: 20140103
  9. GRANULOCYTE COLONY-STIMULATING FACTOR NOS [Concomitant]
  10. LANSOPRAZOLE [Concomitant]
     Dosage: 30MG PER DAY
     Route: 048
     Dates: start: 20121222
  11. SIMVASTATIN [Concomitant]
     Indication: BLOOD CHOLESTEROL INCREASED
     Route: 048
     Dates: start: 20040615
  12. CO-CODAMOL [Concomitant]
     Route: 048
     Dates: start: 20040615
  13. WARFARIN [Concomitant]
     Indication: PULMONARY EMBOLISM
     Dosage: 5MG PER DAY
     Route: 048
     Dates: start: 20130115, end: 20131111
  14. CLEXANE [Concomitant]
     Indication: PULMONARY EMBOLISM
     Dosage: 80MG PER DAY
     Route: 058
     Dates: start: 20131112
  15. CLINDAMYCIN [Concomitant]
     Indication: CELLULITIS
     Route: 042
     Dates: start: 20140106, end: 20140106
  16. FLUCLOXACILLIN [Concomitant]
     Indication: CELLULITIS
     Route: 042
     Dates: start: 20140106, end: 20140108

REACTIONS (2)
  - Arthralgia [Recovered/Resolved]
  - Back pain [Recovered/Resolved]
